FAERS Safety Report 25853558 (Version 1)
Quarter: 2025Q3

REPORT INFORMATION
  Report Type: Spontaneous
  Country: US (occurrence: US)
  Receive Date: 20250926
  Receipt Date: 20250926
  Transmission Date: 20251021
  Serious: Yes (Other)
  Sender: EISAI
  Company Number: US-Eisai-EC-2025-197068

PATIENT

DRUGS (2)
  1. LENVIMA [Suspect]
     Active Substance: LENVATINIB
     Indication: Thyroid cancer
     Route: 048
     Dates: start: 202505
  2. KEYTRUDA [Concomitant]
     Active Substance: PEMBROLIZUMAB
     Indication: Thyroid cancer
     Route: 042

REACTIONS (2)
  - Tracheal fistula [Unknown]
  - Pain [Unknown]

NARRATIVE: CASE EVENT DATE: 20250101
